FAERS Safety Report 23740301 (Version 3)
Quarter: 2024Q4

REPORT INFORMATION
  Report Type: Report from Study
  Country: US (occurrence: US)
  Receive Date: 20240414
  Receipt Date: 20241224
  Transmission Date: 20250115
  Serious: Yes (Hospitalization, Other)
  Sender: ABBVIE
  Company Number: US-ABBVIE-5717160

PATIENT
  Age: 48 Year
  Sex: Female

DRUGS (1)
  1. HUMIRA [Suspect]
     Active Substance: ADALIMUMAB
     Indication: Uveitis
     Route: 058
     Dates: start: 20230711

REACTIONS (7)
  - Diabetic ketoacidosis [Unknown]
  - Diabetic coma [Recovering/Resolving]
  - Joint stiffness [Recovering/Resolving]
  - Type 1 diabetes mellitus [Recovering/Resolving]
  - Hallucination [Unknown]
  - Nausea [Recovering/Resolving]
  - Arthropathy [Unknown]

NARRATIVE: CASE EVENT DATE: 20240201
